FAERS Safety Report 20954377 (Version 1)
Quarter: 2022Q2

REPORT INFORMATION
  Report Type: Spontaneous
  Country: SE (occurrence: SE)
  Receive Date: 20220614
  Receipt Date: 20220614
  Transmission Date: 20220721
  Serious: Yes (Other)
  Sender: FDA-Public Use
  Company Number: SE-AMGEN-SWESP2022097902

PATIENT
  Age: 85 Year
  Sex: Female

DRUGS (3)
  1. PROLIA [Suspect]
     Active Substance: DENOSUMAB
     Indication: Osteoporosis
     Dosage: UNK
     Route: 065
  2. POLYETHYLENE GLYCOLS [Concomitant]
     Active Substance: POLYETHYLENE GLYCOLS
  3. OXAZEPAM [Concomitant]
     Active Substance: OXAZEPAM

REACTIONS (3)
  - Cystitis haemorrhagic [Recovered/Resolved]
  - Pseudomonas infection [Recovered/Resolved]
  - Gardnerella infection [Recovered/Resolved]
